FAERS Safety Report 20411038 (Version 1)
Quarter: 2022Q1

REPORT INFORMATION
  Report Type: Spontaneous
  Country: US (occurrence: None)
  Receive Date: 20220131
  Receipt Date: 20220131
  Transmission Date: 20220423
  Serious: Yes (Life-Threatening, Disabling, Other)
  Sender: FDA-Public Use
  Company Number: None

PATIENT
  Age: 30 Year
  Sex: Male
  Weight: 124.74 kg

DRUGS (4)
  1. ABILIFY [Suspect]
     Active Substance: ARIPIPRAZOLE
     Indication: Anxiety
     Dosage: OTHER FREQUENCY : QHS, AND PRN;  BEDTIME?
     Route: 048
     Dates: start: 20090901, end: 20220128
  2. ABILIFY [Suspect]
     Active Substance: ARIPIPRAZOLE
     Indication: Aggression
  3. ABILIFY [Suspect]
     Active Substance: ARIPIPRAZOLE
     Indication: Bipolar disorder
  4. ABILIFY [Suspect]
     Active Substance: ARIPIPRAZOLE

REACTIONS (7)
  - Hyperhidrosis [None]
  - Urine output increased [None]
  - Alopecia [None]
  - Behaviour disorder [None]
  - Libido decreased [None]
  - Weight increased [None]
  - Breast enlargement [None]

NARRATIVE: CASE EVENT DATE: 20220124
